FAERS Safety Report 5042102-5 (Version None)
Quarter: 2006Q2

REPORT INFORMATION
  Report Type: 
  Country: None (occurrence: None)
  Receive Date: 20060627
  Receipt Date: 20060615
  Transmission Date: 20061013
  Serious: Yes (Hospitalization, Other)
  Sender: FDA-Public Use
  Company Number: 2006BI007361

PATIENT
  Age: 67 Year
  Sex: Female

DRUGS (1)
  1. AVONEX [Suspect]
     Indication: MULTIPLE SCLEROSIS
     Dosage: 30 UG;QW;IM
     Route: 030
     Dates: start: 20040508, end: 20060201

REACTIONS (8)
  - CONSTIPATION [None]
  - ECONOMIC PROBLEM [None]
  - FAECAL INCONTINENCE [None]
  - GASTROINTESTINAL DISORDER [None]
  - IMPAIRED GASTRIC EMPTYING [None]
  - OESOPHAGEAL ACHALASIA [None]
  - OESOPHAGEAL DISORDER [None]
  - PARALYSIS [None]
